FAERS Safety Report 21350057 (Version 1)
Quarter: 2022Q3

REPORT INFORMATION
  Report Type: Spontaneous
  Country: US (occurrence: None)
  Receive Date: 20220917
  Receipt Date: 20220917
  Transmission Date: 20221026
  Serious: No
  Sender: FDA-Public Use
  Company Number: None

PATIENT
  Age: 65 Year
  Sex: Female

DRUGS (1)
  1. ESTRADIOL [Suspect]
     Active Substance: ESTRADIOL
     Indication: Lichen sclerosus

REACTIONS (3)
  - Product packaging quantity issue [None]
  - Device issue [None]
  - Device information output issue [None]

NARRATIVE: CASE EVENT DATE: 20220917
